FAERS Safety Report 15095294 (Version 1)
Quarter: 2018Q3

REPORT INFORMATION
  Report Type: Spontaneous
  Country: US (occurrence: US)
  Receive Date: 20180702
  Receipt Date: 20180702
  Transmission Date: 20181010
  Serious: No
  Sender: FDA-Public Use
  Company Number: US-GLENMARK PHARMACEUTICALS-2018GMK031692

PATIENT

DRUGS (2)
  1. DISTILLED WATER [Concomitant]
     Indication: NASAL SINUS IRRIGATION
     Dosage: UNK
     Route: 065
  2. MUPIROCIN. [Suspect]
     Active Substance: MUPIROCIN
     Indication: NASAL SINUS IRRIGATION
     Dosage: UNK
     Route: 045

REACTIONS (6)
  - Product use in unapproved indication [Unknown]
  - Wrong technique in product usage process [Unknown]
  - Nasal dryness [Unknown]
  - Product use issue [Unknown]
  - Dry eye [Unknown]
  - Incorrect route of drug administration [Unknown]
